FAERS Safety Report 8429127-4 (Version None)
Quarter: 2012Q2

REPORT INFORMATION
  Report Type: 
  Country: None (occurrence: None)
  Receive Date: 20120612
  Receipt Date: 20120607
  Transmission Date: 20120825
  Serious: Yes (Other)
  Sender: FDA-Public Use
  Company Number: US-PFIZER INC-2012138007

PATIENT
  Sex: Female

DRUGS (1)
  1. CHANTIX [Suspect]
     Dosage: UNK

REACTIONS (7)
  - DEPRESSION [None]
  - BACK PAIN [None]
  - FLATULENCE [None]
  - DYSPEPSIA [None]
  - MOOD SWINGS [None]
  - ABDOMINAL DISTENSION [None]
  - FEELING ABNORMAL [None]
